FAERS Safety Report 9226882 (Version 2)
Quarter: 2013Q2

REPORT INFORMATION
  Report Type: Spontaneous
  Country: CY (occurrence: CY)
  Receive Date: 20130412
  Receipt Date: 20130513
  Transmission Date: 20140414
  Serious: Yes (Other)
  Sender: FDA-Public Use
  Company Number: CY-BAYER-2012-108221

PATIENT
  Age: 30 Year
  Sex: Female

DRUGS (1)
  1. MIRENA [Suspect]
     Dosage: 20 MCG/24HR, CONT
     Route: 015
     Dates: start: 20120515, end: 201303

REACTIONS (5)
  - Pregnancy with contraceptive device [None]
  - Medication error [None]
  - Postpartum haemorrhage [Recovered/Resolved]
  - Hysterectomy [Recovered/Resolved]
  - Breech presentation [None]
